FAERS Safety Report 7360320-8 (Version None)
Quarter: 2011Q1

REPORT INFORMATION
  Report Type: 
  Country: None (occurrence: None)
  Receive Date: 20110318
  Receipt Date: 20110308
  Transmission Date: 20110831
  Serious: Yes (Life-Threatening, Hospitalization)
  Sender: FDA-Public Use
  Company Number: US-CELGENEUS-163-C5013-11012379

PATIENT
  Sex: Male
  Weight: 98.972 kg

DRUGS (39)
  1. PROCHLORPERAZINE [Concomitant]
     Indication: NAUSEA
     Dosage: 10 MILLIGRAM
     Route: 048
     Dates: start: 20101113
  2. HYDROCODONE BITARTRATE AND ACETAMINOPHEN [Concomitant]
     Indication: PAIN
     Dosage: 5/500
     Route: 048
     Dates: start: 20080101
  3. ZOMETA [Concomitant]
     Dosage: 4 MILLIGRAM
     Route: 051
     Dates: start: 20101001
  4. PRILOSEC [Concomitant]
     Dosage: 20 MILLIGRAM
     Route: 048
     Dates: start: 20110211
  5. OXYCONTIN [Concomitant]
     Indication: PAIN
     Dosage: 10 MILLIGRAM
     Route: 048
     Dates: start: 20110211
  6. TYLENOL-500 [Concomitant]
     Indication: PAIN
     Dosage: 325 MILLIGRAM
     Route: 065
     Dates: start: 20110211
  7. MAALOX [Concomitant]
     Dosage: 30 MILLILITER
     Route: 048
     Dates: start: 20110211
  8. HEPARIN [Concomitant]
     Route: 058
  9. ZAROXOLYN [Concomitant]
     Indication: HYPERTENSION
     Dosage: 5 MILLIGRAM
     Route: 048
     Dates: start: 20110211
  10. POTASSIUM CHLORIDE [Concomitant]
     Indication: SUPPLEMENTATION THERAPY
     Dosage: 20 MILLIEQUIVALENTS
     Route: 048
     Dates: start: 20110211
  11. TRIAMCINOLONE [Concomitant]
     Indication: RASH
     Route: 061
     Dates: start: 20110211
  12. ALBUTEROL [Concomitant]
     Route: 055
     Dates: start: 20110211
  13. NITROSTAT [Concomitant]
     Indication: CHEST PAIN
     Dosage: 1
     Route: 065
     Dates: start: 20110211
  14. CC-5013\PLACEBO [Suspect]
     Indication: PROSTATE CANCER
     Dosage: 25 MILLIGRAM
     Route: 048
     Dates: start: 20101123
  15. PREDNISONE TAB [Suspect]
     Indication: PROSTATE CANCER
     Dosage: 10 MILLIGRAM
     Route: 048
     Dates: start: 20101123
  16. PREDNISONE TAB [Suspect]
     Dosage: 10 MILLIGRAM
     Route: 048
     Dates: start: 20110104, end: 20110116
  17. PREDNISONE TAB [Suspect]
     Dosage: 15 MILLIGRAM
     Route: 048
     Dates: start: 20110211
  18. ZOMETA [Concomitant]
     Indication: NAUSEA
     Dosage: 4 MILLIGRAM
     Route: 048
     Dates: start: 20101001
  19. AMIODARONE [Concomitant]
     Indication: ATRIAL FIBRILLATION
     Dosage: 200 MILLIGRAM
     Route: 048
     Dates: start: 20110211
  20. CEFEPIME [Concomitant]
     Indication: SEPSIS
     Dosage: 1 GRAM
     Route: 051
     Dates: start: 20110211
  21. VICODIN [Concomitant]
     Indication: PAIN
     Dosage: 1 TABLET
     Route: 048
     Dates: start: 20110211
  22. CC-5013\PLACEBO [Suspect]
     Dosage: 25 MILLIGRAM
     Route: 048
     Dates: start: 20110104, end: 20110116
  23. DOCETAXEL [Suspect]
     Indication: PROSTATE CANCER
     Dosage: 158 MILLIGRAM
     Route: 065
     Dates: start: 20101123
  24. PROCRIT [Concomitant]
     Dosage: 20K
     Route: 058
     Dates: start: 20110211
  25. AMIODARONE [Concomitant]
     Route: 048
     Dates: start: 20110124
  26. VITAMIN D [Concomitant]
     Indication: SUPPLEMENTATION THERAPY
     Dosage: 50000 U
     Route: 048
     Dates: start: 20110211
  27. LORAZEPAM [Concomitant]
     Indication: ANXIETY
     Dosage: .5 MILLIGRAM
     Route: 048
     Dates: start: 20110211
  28. ZOFRAN [Concomitant]
     Indication: NAUSEA
     Dosage: 4 MILLIGRAM
     Route: 048
     Dates: start: 20110211
  29. LUPRON [Concomitant]
     Indication: PROSTATE CANCER
     Dosage: 30 MILLIGRAM
     Route: 030
     Dates: start: 20000101
  30. CALCIUM CARBONATE [Concomitant]
     Indication: SUPPLEMENTATION THERAPY
     Dosage: 650 MILLIGRAM
     Route: 048
     Dates: start: 20110211
  31. MYCOSTATIN [Concomitant]
     Indication: RASH
     Route: 061
     Dates: start: 20110211
  32. DOCETAXEL [Suspect]
     Dosage: 158 MILLIGRAM
     Route: 065
     Dates: start: 20110104, end: 20110105
  33. COREG [Concomitant]
     Dosage: 6.25 MILLIGRAM
     Route: 048
     Dates: start: 20110211
  34. HYDROCORTISONE [Concomitant]
     Indication: RASH
     Dosage: AS DIRECTED
     Route: 061
     Dates: start: 20110211
  35. BISACODYL [Concomitant]
     Indication: CONSTIPATION
     Dosage: 5 MILLIGRAM
     Route: 048
     Dates: start: 20110211
  36. COLACE [Concomitant]
     Indication: CONSTIPATION
     Dosage: 1 TABLET
     Route: 048
     Dates: start: 20110211
  37. UROXATRAL [Concomitant]
     Route: 065
  38. OMEPRAZOLE [Concomitant]
     Route: 058
  39. SODIUM CHLORIDE [Concomitant]
     Dosage: .9 PERCENT
     Route: 058

REACTIONS (5)
  - ACUTE RESPIRATORY FAILURE [None]
  - ATRIAL FIBRILLATION [None]
  - CARDIAC FAILURE CONGESTIVE [None]
  - SEPSIS [None]
  - RENAL FAILURE ACUTE [None]
